FAERS Safety Report 19095901 (Version 1)
Quarter: 2021Q2

REPORT INFORMATION
  Report Type: Report from Study
  Country: None (occurrence: RO)
  Receive Date: 20210406
  Receipt Date: 20210406
  Transmission Date: 20210717
  Serious: Yes (Disabling)
  Sender: FDA-Public Use
  Company Number: RO-ABBVIE-21K-135-3843444-00

PATIENT
  Age: 69 Year
  Sex: Male

DRUGS (2)
  1. DUODOPA [Suspect]
     Active Substance: CARBIDOPA\LEVODOPA
  2. DUODOPA [Suspect]
     Active Substance: CARBIDOPA\LEVODOPA
     Indication: PARKINSON^S DISEASE
     Dosage: DM=7.00 DC=3.60 ED=2.00 NRED=1; DMN=0.00 DCN=0.00 EDN=0.00 NREDN=0
     Route: 050
     Dates: start: 20101026

REACTIONS (6)
  - Mobility decreased [Unknown]
  - Cognitive disorder [Recovering/Resolving]
  - Hypertension [Recovered/Resolved]
  - General physical condition abnormal [Unknown]
  - Delusion [Unknown]
  - Delusional disorder, unspecified type [Unknown]

NARRATIVE: CASE EVENT DATE: 2016
